FAERS Safety Report 14295882 (Version 1)
Quarter: 2017Q4

REPORT INFORMATION
  Report Type: Spontaneous
  Country: US (occurrence: US)
  Receive Date: 20171218
  Receipt Date: 20171218
  Transmission Date: 20180321
  Serious: Yes (Death)
  Sender: FDA-Public Use
  Company Number: US-JNJFOC-20171216390

PATIENT
  Age: 12 Year

DRUGS (1)
  1. DARZALEX [Suspect]
     Active Substance: DARATUMUMAB
     Indication: T-CELL LYMPHOMA
     Route: 042

REACTIONS (3)
  - Off label use [Unknown]
  - Disease complication [Fatal]
  - Drug administered to patient of inappropriate age [Unknown]
